FAERS Safety Report 5794463-7 (Version None)
Quarter: 2008Q2

REPORT INFORMATION
  Report Type: 
  Country: None (occurrence: None)
  Receive Date: 20080630
  Receipt Date: 20080617
  Transmission Date: 20081010
  Serious: Yes (Other)
  Sender: FDA-Public Use
  Company Number: PHEH2008US05456

PATIENT
  Sex: Female

DRUGS (6)
  1. TRILEPTAL [Suspect]
     Indication: CONVULSION
     Dosage: 4 ML, QD
     Route: 048
     Dates: start: 20080301, end: 20080501
  2. LAMICTAL [Suspect]
     Indication: CONVULSION
     Dosage: 125 BID/15 MG BID
     Route: 048
     Dates: start: 20060915
  3. LAMICTAL [Suspect]
     Dosage: 2 MG, TID
  4. POLYETHYLENE GLYCOL [Concomitant]
  5. CLONAZEPAM [Concomitant]
  6. CLONIDINE [Concomitant]

REACTIONS (2)
  - CONVULSION [None]
  - SOMNOLENCE [None]
